FAERS Safety Report 17245680 (Version 14)
Quarter: 2021Q2

REPORT INFORMATION
  Report Type: Report from Study
  Country: CA (occurrence: CA)
  Receive Date: 20200108
  Receipt Date: 20210415
  Transmission Date: 20210716
  Serious: Yes (Hospitalization, Other)
  Sender: FDA-Public Use
  Company Number: CA-TAKEDA-2019TUS061908

PATIENT
  Age: 82 Year
  Sex: Female

DRUGS (7)
  1. VEDOLIZUMAB [Suspect]
     Active Substance: VEDOLIZUMAB
     Dosage: 300 MILLIGRAM
     Route: 042
  2. VEDOLIZUMAB [Suspect]
     Active Substance: VEDOLIZUMAB
     Dosage: 300 MILLIGRAM
     Route: 042
  3. SYNTHROID [Concomitant]
     Active Substance: LEVOTHYROXINE SODIUM
     Dosage: UNK
  4. ATENOLOL. [Concomitant]
     Active Substance: ATENOLOL
     Dosage: UNK
  5. VEDOLIZUMAB [Suspect]
     Active Substance: VEDOLIZUMAB
     Dosage: 300 MILLIGRAM
     Route: 042
  6. TYLENOL WITH CODEINE [Suspect]
     Active Substance: ACETAMINOPHEN\CODEINE PHOSPHATE
     Indication: PAIN IN EXTREMITY
     Dosage: UNK
     Route: 065
  7. VEDOLIZUMAB [Suspect]
     Active Substance: VEDOLIZUMAB
     Indication: CROHN^S DISEASE
     Dosage: 300 MILLIGRAM
     Route: 042
     Dates: start: 20190530

REACTIONS (29)
  - Dyspnoea [Not Recovered/Not Resolved]
  - Renal impairment [Unknown]
  - Chest pain [Unknown]
  - Vomiting [Recovering/Resolving]
  - Constipation [Unknown]
  - Therapeutic reaction time decreased [Unknown]
  - Decubitus ulcer [Unknown]
  - Diarrhoea [Unknown]
  - Visual impairment [Unknown]
  - Arthritis [Not Recovered/Not Resolved]
  - Hiatus hernia [Unknown]
  - Faeces discoloured [Unknown]
  - Generalised oedema [Unknown]
  - Palpitations [Unknown]
  - Peripheral swelling [Unknown]
  - Pain in extremity [Unknown]
  - Gangrene [Unknown]
  - Dysphagia [Not Recovered/Not Resolved]
  - Gastrointestinal haemorrhage [Unknown]
  - Movement disorder [Unknown]
  - Asthenia [Unknown]
  - Arthralgia [Unknown]
  - Back pain [Unknown]
  - Drug ineffective [Unknown]
  - Spinal fracture [Unknown]
  - Infection [Unknown]
  - Toe amputation [Unknown]
  - Fall [Unknown]
  - Blood pressure increased [Not Recovered/Not Resolved]

NARRATIVE: CASE EVENT DATE: 20200201
